FAERS Safety Report 18126181 (Version 4)
Quarter: 2020Q3

REPORT INFORMATION
  Report Type: Report from Study
  Country: US (occurrence: US)
  Receive Date: 20200808
  Receipt Date: 20200922
  Transmission Date: 20201103
  Serious: Yes (Hospitalization, Other)
  Sender: FDA-Public Use
  Company Number: NVSC2020US220373

PATIENT
  Sex: Female

DRUGS (1)
  1. ENTRESTO [Suspect]
     Active Substance: SACUBITRIL\VALSARTAN
     Indication: CARDIAC FAILURE
     Dosage: 100 MG, BID (49/51 MG)
     Route: 048
     Dates: start: 202007

REACTIONS (4)
  - Fluid retention [Unknown]
  - Arthritis [Unknown]
  - Weight decreased [Unknown]
  - Heart rate irregular [Unknown]
